FAERS Safety Report 12563974 (Version 2)
Quarter: 2016Q3

REPORT INFORMATION
  Report Type: Report from Study
  Country: CA (occurrence: CA)
  Receive Date: 20160717
  Receipt Date: 20160726
  Transmission Date: 20161109
  Serious: Yes (Other)
  Sender: FDA-Public Use
  Company Number: PHHY2016CA045698

PATIENT
  Age: 63 Year
  Sex: Female

DRUGS (6)
  1. XOLAIR [Suspect]
     Active Substance: OMALIZUMAB
     Dosage: UNK
     Route: 058
     Dates: start: 20160427
  2. XOLAIR [Suspect]
     Active Substance: OMALIZUMAB
     Dosage: 300 MG, EVERY 4 WEEKS
     Route: 058
     Dates: start: 20160623
  3. XOLAIR [Suspect]
     Active Substance: OMALIZUMAB
     Indication: CHRONIC SPONTANEOUS URTICARIA
     Dosage: 300 MG, EVERY 4 WEEK
     Route: 058
     Dates: start: 20160330
  4. XOLAIR [Suspect]
     Active Substance: OMALIZUMAB
     Dosage: 300 MG, BIW
     Route: 058
     Dates: start: 20160702
  5. XOLAIR [Suspect]
     Active Substance: OMALIZUMAB
     Dosage: UNK
     Route: 058
     Dates: start: 20160525
  6. CYCLOSPORINE. [Concomitant]
     Active Substance: CYCLOSPORINE
     Indication: PRODUCT USED FOR UNKNOWN INDICATION
     Route: 065

REACTIONS (33)
  - Stomatitis [Recovering/Resolving]
  - Paraesthesia oral [Recovered/Resolved]
  - Pruritus [Recovering/Resolving]
  - Hypersensitivity [Unknown]
  - Oral discomfort [Recovering/Resolving]
  - Feeling abnormal [Unknown]
  - Skin burning sensation [Unknown]
  - Urticaria [Not Recovered/Not Resolved]
  - Hypoacusis [Unknown]
  - Drug ineffective [Recovered/Resolved]
  - Blood pressure decreased [Recovering/Resolving]
  - Joint swelling [Unknown]
  - Pain in extremity [Unknown]
  - Dysgeusia [Recovered/Resolved]
  - Mouth swelling [Not Recovered/Not Resolved]
  - Paraesthesia oral [Unknown]
  - Swelling [Unknown]
  - Blood pressure systolic increased [Unknown]
  - Insomnia [Unknown]
  - Bone pain [Unknown]
  - Lower respiratory tract infection [Recovered/Resolved]
  - Erythema [Unknown]
  - Asthenia [Recovered/Resolved]
  - Hypertrophy of tongue papillae [Recovering/Resolving]
  - Lip blister [Unknown]
  - Vision blurred [Unknown]
  - Lower respiratory tract infection [Recovering/Resolving]
  - Burning sensation [Not Recovered/Not Resolved]
  - Oral pruritus [Recovering/Resolving]
  - Dizziness [Unknown]
  - Arthralgia [Not Recovered/Not Resolved]
  - Nonspecific reaction [Unknown]
  - Pyrexia [Unknown]

NARRATIVE: CASE EVENT DATE: 20160331
